FAERS Safety Report 15689924 (Version 1)
Quarter: 2018Q4

REPORT INFORMATION
  Report Type: Spontaneous
  Country: US (occurrence: US)
  Receive Date: 20181126
  Receipt Date: 20181126
  Transmission Date: 20190205
  Serious: No
  Sender: FDA-Public Use
  Company Number: None

PATIENT
  Age: 29 Year
  Sex: Female

DRUGS (1)
  1. LUPRON DEPOT [Suspect]
     Active Substance: LEUPROLIDE ACETATE
     Indication: ENDOMETRIOSIS
     Route: 030
     Dates: start: 20180925

REACTIONS (5)
  - Hot flush [None]
  - Asthenia [None]
  - Arthralgia [None]
  - Migraine [None]
  - Joint swelling [None]

NARRATIVE: CASE EVENT DATE: 20180925
